FAERS Safety Report 13261105 (Version 1)
Quarter: 2017Q1

REPORT INFORMATION
  Report Type: Report from Study
  Country: US (occurrence: US)
  Receive Date: 20170222
  Receipt Date: 20170222
  Transmission Date: 20170428
  Serious: No
  Sender: FDA-Public Use
  Company Number: US-TEVA-731721ACC

PATIENT
  Sex: Male

DRUGS (9)
  1. VITAMIN D3 [Concomitant]
     Active Substance: CHOLECALCIFEROL
  2. MULTIVITAMIN [Concomitant]
     Active Substance: VITAMINS
  3. PROVIGIL [Concomitant]
     Active Substance: MODAFINIL
  4. ATIVAN [Concomitant]
     Active Substance: LORAZEPAM
  5. COPAXONE [Suspect]
     Active Substance: GLATIRAMER ACETATE
     Indication: PRODUCT USED FOR UNKNOWN INDICATION
     Dosage: UNKNOWN FORM STRENGTH
  6. CALCIUM [Concomitant]
     Active Substance: CALCIUM
  7. OXYCODONE [Concomitant]
     Active Substance: OXYCODONE
  8. NUVIGIL [Concomitant]
     Active Substance: ARMODAFINIL
  9. AMPYRA [Suspect]
     Active Substance: DALFAMPRIDINE
     Indication: MULTIPLE SCLEROSIS
     Dosage: 20 MILLIGRAM DAILY;
     Route: 048

REACTIONS (2)
  - Injection site mass [Unknown]
  - Injection site erythema [Unknown]
